FAERS Safety Report 19633994 (Version 1)
Quarter: 2021Q3

REPORT INFORMATION
  Report Type: Spontaneous
  Country: US (occurrence: US)
  Receive Date: 20210729
  Receipt Date: 20210729
  Transmission Date: 20211014
  Serious: Yes (Other)
  Sender: FDA-Public Use
  Company Number: None

PATIENT
  Sex: Female

DRUGS (1)
  1. GEMFIBROZIL. [Suspect]
     Active Substance: GEMFIBROZIL

REACTIONS (1)
  - Treatment failure [None]
